FAERS Safety Report 9313142 (Version 1)
Quarter: 2013Q2

REPORT INFORMATION
  Report Type: Spontaneous
  Country: IT (occurrence: IT)
  Receive Date: 20130528
  Receipt Date: 20130528
  Transmission Date: 20140414
  Serious: Yes (Other)
  Sender: FDA-Public Use
  Company Number: IT-ASTRAZENECA-2013SE35035

PATIENT
  Age: 18483 Day
  Sex: Female

DRUGS (2)
  1. ZESTRIL [Suspect]
     Indication: HYPERTENSION
     Route: 048
     Dates: start: 20130221, end: 20130321
  2. LOSARTAN DOC GENERICI [Suspect]
     Indication: HYPERTENSION
     Route: 048
     Dates: start: 20130221, end: 20130321

REACTIONS (3)
  - Blood pressure increased [Unknown]
  - Headache [Recovering/Resolving]
  - Drug ineffective [Unknown]
